FAERS Safety Report 13908224 (Version 1)
Quarter: 2017Q3

REPORT INFORMATION
  Report Type: Spontaneous
  Country: US (occurrence: US)
  Receive Date: 20170825
  Receipt Date: 20170825
  Transmission Date: 20171127
  Serious: No
  Sender: FDA-Public Use
  Company Number: US-TEIKOKU PHARMA USA-TPU2017-00490

PATIENT
  Sex: Male

DRUGS (2)
  1. LIDOCAINE PATCH [Suspect]
     Active Substance: LIDOCAINE
     Indication: BACK PAIN
  2. NALTREXONE [Suspect]
     Active Substance: NALTREXONE

REACTIONS (3)
  - Hallucination, auditory [Unknown]
  - Confusional state [Unknown]
  - Hallucination [Unknown]
